FAERS Safety Report 22360889 (Version 1)
Quarter: 2023Q2

REPORT INFORMATION
  Report Type: Spontaneous
  Country: US (occurrence: None)
  Receive Date: 20230524
  Receipt Date: 20230524
  Transmission Date: 20230722
  Serious: No
  Sender: FDA-Public Use
  Company Number: None

PATIENT
  Age: 55 Year
  Sex: Female
  Weight: 76.7 kg

DRUGS (12)
  1. HUMIRA [Suspect]
     Active Substance: ADALIMUMAB
     Indication: Rheumatoid arthritis
     Dosage: OTHER FREQUENCY : EVERY 14 DAYS;?
     Route: 058
  2. Robaxin 500 mg [Concomitant]
  3. Ergocalciferol 1250 mcg [Concomitant]
  4. ACETAMINOPHEN [Concomitant]
     Active Substance: ACETAMINOPHEN
  5. LIDOCAINE PATCH [Concomitant]
     Active Substance: LIDOCAINE
  6. Remeron 15 mg [Concomitant]
  7. NAPROXEN [Concomitant]
     Active Substance: NAPROXEN
  8. VITAMINS [Concomitant]
     Active Substance: VITAMINS
  9. CLONAZEPAM [Concomitant]
     Active Substance: CLONAZEPAM
  10. LEVOTHYROXINE [Concomitant]
     Active Substance: LEVOTHYROXINE
  11. Symbicort HFA [Concomitant]
  12. PROVENTIL HFA [Concomitant]
     Active Substance: ALBUTEROL SULFATE

REACTIONS (3)
  - Hypoaesthesia [None]
  - Paraesthesia [None]
  - Paraesthesia [None]

NARRATIVE: CASE EVENT DATE: 20230524
